FAERS Safety Report 6417529-7 (Version None)
Quarter: 2009Q4

REPORT INFORMATION
  Report Type: 
  Country: None (occurrence: None)
  Receive Date: 20091028
  Receipt Date: 20091016
  Transmission Date: 20100525
  Serious: Yes (Other)
  Sender: FDA-Public Use
  Company Number: KR-PFIZER INC-2009284103

PATIENT
  Age: 66 Year

DRUGS (6)
  1. VORICONAZOLE [Suspect]
     Indication: CANDIDIASIS
     Dosage: 200 MG, 2X/DAY
     Route: 048
     Dates: start: 20081027, end: 20081205
  2. AMLODIPINE [Concomitant]
     Indication: ANGINA PECTORIS
     Dosage: 5 MG, 1X/DAY
     Route: 048
     Dates: start: 20081021, end: 20081030
  3. CLOPIDOGREL [Concomitant]
     Indication: ANGINA PECTORIS
     Dosage: 75 MG, 1X/DAY
     Route: 048
     Dates: start: 20081021, end: 20081030
  4. AMOXICILLIN [Concomitant]
     Indication: ENDOPHTHALMITIS
     Dosage: 625 MG, 2X/DAY
     Route: 048
     Dates: start: 20081029, end: 20081030
  5. CEFIXIME [Concomitant]
     Indication: ENDOPHTHALMITIS
     Dosage: 100 MG, 2X/DAY
     Route: 048
     Dates: start: 20081023, end: 20081112
  6. CEFAZEDONE [Concomitant]
     Indication: ENDOPHTHALMITIS
     Dosage: 1 G, 2X/DAY
     Route: 042
     Dates: start: 20081020, end: 20081022

REACTIONS (3)
  - DRUG INEFFECTIVE [None]
  - GASTRIC PERFORATION [None]
  - GASTRIC ULCER [None]
